FAERS Safety Report 8339463-8 (Version None)
Quarter: 2012Q2

REPORT INFORMATION
  Report Type: 
  Country: None (occurrence: None)
  Receive Date: 20120507
  Receipt Date: 20120423
  Transmission Date: 20120825
  Serious: Yes (Other)
  Sender: FDA-Public Use
  Company Number: PHHY2012BR027038

PATIENT
  Sex: Female

DRUGS (1)
  1. RITALIN LA [Suspect]
     Indication: ATTENTION DEFICIT/HYPERACTIVITY DISORDER
     Dosage: 1 DF, ONE CAPSULE
     Dates: start: 20120301

REACTIONS (5)
  - FATIGUE [None]
  - VOMITING [None]
  - SOMNOLENCE [None]
  - MALAISE [None]
  - WEIGHT DECREASED [None]
